FAERS Safety Report 15230909 (Version 1)
Quarter: 2018Q3

REPORT INFORMATION
  Report Type: Spontaneous
  Country: JP (occurrence: JP)
  Receive Date: 20180802
  Receipt Date: 20180802
  Transmission Date: 20181010
  Serious: Yes (Hospitalization)
  Sender: FDA-Public Use
  Company Number: JP-ASTRAZENECA-2018SE96075

PATIENT
  Age: 79 Year
  Sex: Male

DRUGS (1)
  1. ESOMEPRAZOLE [Suspect]
     Active Substance: ESOMEPRAZOLE
     Dosage: 20.0MG UNKNOWN
     Route: 048

REACTIONS (3)
  - Ileus paralytic [Recovered/Resolved]
  - Intestinal obstruction [Recovered/Resolved]
  - Gastrointestinal mucosal disorder [Recovered/Resolved]
